FAERS Safety Report 10610396 (Version 1)
Quarter: 2014Q4

REPORT INFORMATION
  Report Type: Spontaneous
  Country: DK (occurrence: None)
  Receive Date: 20141124
  Receipt Date: 20141124
  Transmission Date: 20150529
  Serious: Yes (Hospitalization, Other)
  Sender: FDA-Public Use
  Company Number: DK-ZYDUS-005525

PATIENT
  Age: 84 Year
  Sex: Female

DRUGS (1)
  1. WARFARIN [Suspect]
     Active Substance: WARFARIN
     Indication: PULMONARY EMBOLISM

REACTIONS (15)
  - Fall [None]
  - Face injury [None]
  - Chest injury [None]
  - Dysphagia [None]
  - Leukocytosis [None]
  - Haematoma [None]
  - Oesophageal perforation [None]
  - Chest pain [None]
  - Tachycardia [None]
  - Post procedural infection [None]
  - Fungal infection [None]
  - Bacterial infection [None]
  - Pyrexia [None]
  - Oesophageal disorder [None]
  - Acidosis [None]
